FAERS Safety Report 9523018 (Version 3)
Quarter: 2013Q3

REPORT INFORMATION
  Report Type: Spontaneous
  Country: BR (occurrence: None)
  Receive Date: 20130823
  Receipt Date: 20130916
  Transmission Date: 20140515
  Serious: Yes (Life-Threatening, Hospitalization)
  Sender: FDA-Public Use
  Company Number: 2013037480

PATIENT
  Age: 7 Day
  Sex: Female

DRUGS (1)
  1. RHOPHYLAC [Suspect]
     Route: 030
     Dates: start: 20130806

REACTIONS (8)
  - Jaundice neonatal [None]
  - Tremor [None]
  - Chills [None]
  - Nausea [None]
  - Medication error [None]
  - Expired drug administered [None]
  - Maternal drugs affecting foetus [None]
  - Blood bilirubin increased [None]
